FAERS Safety Report 12613897 (Version 7)
Quarter: 2020Q2

REPORT INFORMATION
  Report Type: Spontaneous
  Country: US (occurrence: US)
  Receive Date: 20160802
  Receipt Date: 20200519
  Transmission Date: 20200713
  Serious: Yes (Other)
  Sender: FDA-Public Use
  Company Number: US-PFIZER INC-2016354161

PATIENT
  Age: 72 Year
  Sex: Female
  Weight: 83 kg

DRUGS (3)
  1. IBRANCE [Suspect]
     Active Substance: PALBOCICLIB
     Dosage: 100 MG, CYCLIC, (DAILY FOR 21 DAYS ON + 7 DAYS OFF/ DINNER TIME, 21 DAYS ON AND ONE WEEK OFF)
     Dates: end: 20160718
  2. LETROZOLE. [Concomitant]
     Active Substance: LETROZOLE
     Dosage: UNK
  3. IBRANCE [Suspect]
     Active Substance: PALBOCICLIB
     Indication: BREAST CANCER METASTATIC
     Dosage: 125 MG, UNK

REACTIONS (16)
  - Inappropriate schedule of product administration [Unknown]
  - Emotional disorder [Unknown]
  - Asthenia [Not Recovered/Not Resolved]
  - Product dose omission [Unknown]
  - Somnolence [Not Recovered/Not Resolved]
  - Cystitis [Not Recovered/Not Resolved]
  - Stomatitis [Unknown]
  - Fatigue [Not Recovered/Not Resolved]
  - Kidney infection [Not Recovered/Not Resolved]
  - Extra dose administered [Unknown]
  - Blood count abnormal [Unknown]
  - Product quality issue [Unknown]
  - Urinary tract infection [Not Recovered/Not Resolved]
  - White blood cell count decreased [Not Recovered/Not Resolved]
  - Hypertension [Unknown]
  - Panic attack [Unknown]

NARRATIVE: CASE EVENT DATE: 20160718
